FAERS Safety Report 10346362 (Version 4)
Quarter: 2014Q3

REPORT INFORMATION
  Report Type: Spontaneous
  Country: DE (occurrence: DE)
  Receive Date: 20140728
  Receipt Date: 20140818
  Transmission Date: 20150326
  Serious: Yes (Hospitalization, Other)
  Sender: FDA-Public Use
  Company Number: DE-GILEAD-2014-0110219

PATIENT
  Age: 82 Year
  Sex: Male

DRUGS (2)
  1. OLYSIO [Concomitant]
     Active Substance: SIMEPREVIR
     Indication: HEPATITIS C
     Dosage: 1 DF, QD
     Dates: start: 20140629
  2. SOVALDI [Suspect]
     Active Substance: SOFOSBUVIR
     Indication: HEPATITIS C
     Dosage: 400 MG, UNK
     Route: 065
     Dates: start: 20140629

REACTIONS (8)
  - Haemoglobin decreased [Recovering/Resolving]
  - Vision blurred [Unknown]
  - Hypoaesthesia [Unknown]
  - Red blood cell count decreased [Recovering/Resolving]
  - Gastric haemorrhage [Recovered/Resolved]
  - Asthenia [Unknown]
  - Melaena [Unknown]
  - Memory impairment [Unknown]

NARRATIVE: CASE EVENT DATE: 20140708
